FAERS Safety Report 23214355 (Version 1)
Quarter: 2023Q4

REPORT INFORMATION
  Report Type: Spontaneous
  Country: US (occurrence: None)
  Receive Date: 20231121
  Receipt Date: 20231121
  Transmission Date: 20240110
  Serious: Yes (Other)
  Sender: FDA-Public Use
  Company Number: 2023A263340

PATIENT
  Age: 65 Year
  Sex: Male
  Weight: 77.6 kg

DRUGS (34)
  1. PULMICORT RESPULES [Suspect]
     Active Substance: BUDESONIDE
     Indication: Unknown immunisation status
     Route: 055
  2. TYVASO [Suspect]
     Active Substance: TREPROSTINIL
     Indication: Hypertension
  3. TYVASO [Suspect]
     Active Substance: TREPROSTINIL
     Indication: Hypertension
     Dates: start: 20170303
  4. TYVASO DPI [Suspect]
     Active Substance: TREPROSTINIL
     Indication: Hypertension
  5. TYVASO DPI [Suspect]
     Active Substance: TREPROSTINIL
     Indication: Hypertension
  6. TYVASO DPI [Suspect]
     Active Substance: TREPROSTINIL
     Indication: Hypertension
     Dates: start: 20230306
  7. TYVASO DPI [Suspect]
     Active Substance: TREPROSTINIL
     Indication: Hypertension
     Dates: start: 20230306
  8. TYVASO DPI [Suspect]
     Active Substance: TREPROSTINIL
     Indication: Hypertension
  9. TYVASO DPI [Suspect]
     Active Substance: TREPROSTINIL
     Indication: Hypertension
  10. TYVASO DPI [Suspect]
     Active Substance: TREPROSTINIL
     Indication: Hypertension
  11. TYVASO DPI [Suspect]
     Active Substance: TREPROSTINIL
     Indication: Hypertension
  12. TYVASO DPI [Suspect]
     Active Substance: TREPROSTINIL
     Indication: Hypertension
  13. TYVASO DPI [Suspect]
     Active Substance: TREPROSTINIL
     Indication: Hypertension
  14. TYLENOL [Suspect]
     Active Substance: ACETAMINOPHEN
     Indication: Unknown immunisation status
  15. TYLENOL [Suspect]
     Active Substance: ACETAMINOPHEN
     Indication: Unknown immunisation status
  16. PANTOPRAZOLE [Suspect]
     Active Substance: PANTOPRAZOLE
     Indication: Unknown immunisation status
     Dosage: UNKNOWN
  17. AMBRISENTAN [Concomitant]
     Active Substance: AMBRISENTAN
  18. DUREZOL [Concomitant]
     Active Substance: DIFLUPREDNATE
  19. IMODIUM A-D [Concomitant]
     Active Substance: LOPERAMIDE HYDROCHLORIDE
  20. ALLEGRA [Concomitant]
     Active Substance: FEXOFENADINE HYDROCHLORIDE
  21. VITAMIN D3 [Concomitant]
     Active Substance: CHOLECALCIFEROL
  22. ILEVRO [Concomitant]
     Active Substance: NEPAFENAC
  23. AMOXICILLIN [Concomitant]
     Active Substance: AMOXICILLIN
  24. OXYGEN [Concomitant]
     Active Substance: OXYGEN
  25. CALCIUM [Concomitant]
     Active Substance: CALCIUM
  26. ASPIRIN [Concomitant]
     Active Substance: ASPIRIN
  27. FERROUS SULFATE [Concomitant]
     Active Substance: FERROUS SULFATE
  28. ZOFRAN [Concomitant]
     Active Substance: ONDANSETRON HYDROCHLORIDE
  29. PROLIA [Concomitant]
     Active Substance: DENOSUMAB
  30. LOPERAMIDE [Concomitant]
     Active Substance: LOPERAMIDE
  31. ADVIL [Concomitant]
     Active Substance: IBUPROFEN
  32. VITAMINS [Concomitant]
     Active Substance: VITAMINS
  33. GARLIC [Concomitant]
     Active Substance: GARLIC
  34. CORICIDIN HBP MAXIMUM STRENGTH FLU [Concomitant]
     Active Substance: ACETAMINOPHEN\CHLORPHENIRAMINE MALEATE\DEXTROMETHORPHAN HYDROBROMIDE

REACTIONS (37)
  - Diarrhoea [Unknown]
  - Malaise [Unknown]
  - Rhinorrhoea [Unknown]
  - Fatigue [Unknown]
  - Epistaxis [Unknown]
  - Hypoacusis [Unknown]
  - Nasal congestion [Unknown]
  - Cough [Unknown]
  - Pyrexia [Unknown]
  - Secretion discharge [Unknown]
  - COVID-19 [Unknown]
  - Nasal dryness [Unknown]
  - Autoimmune disorder [Unknown]
  - Oesophageal food impaction [Unknown]
  - Nephrolithiasis [Unknown]
  - Somnolence [Unknown]
  - Fatigue [Unknown]
  - Memory impairment [Unknown]
  - Illness [Unknown]
  - Eosinophilic oesophagitis [Unknown]
  - Food allergy [Unknown]
  - Weight increased [Unknown]
  - Post-traumatic stress disorder [Unknown]
  - Frustration tolerance decreased [Unknown]
  - Depressed mood [Unknown]
  - Cough [Unknown]
  - Dysphagia [Unknown]
  - Dyspnoea [Unknown]
  - Seasonal allergy [Unknown]
  - Nausea [Unknown]
  - Vomiting [Unknown]
  - Liver function test abnormal [Unknown]
  - Urinary tract disorder [Unknown]
  - Flushing [Unknown]
  - Chest pain [Unknown]
  - Product dose omission issue [Unknown]
  - Expired product administered [Unknown]

NARRATIVE: CASE EVENT DATE: 20231104
